FAERS Safety Report 15980907 (Version 1)
Quarter: 2019Q1

REPORT INFORMATION
  Report Type: Spontaneous
  Country: US (occurrence: US)
  Receive Date: 20190218
  Receipt Date: 20190218
  Transmission Date: 20190418
  Serious: No
  Sender: FDA-Public Use
  Company Number: None

PATIENT
  Age: 5 Year
  Sex: Male

DRUGS (10)
  1. LAMOTRIGINE. [Concomitant]
     Active Substance: LAMOTRIGINE
  2. ZYRTEC [Concomitant]
     Active Substance: CETIRIZINE HYDROCHLORIDE
  3. FLONASE [Concomitant]
     Active Substance: FLUTICASONE PROPIONATE
  4. EPIDIOLEX [Suspect]
     Active Substance: CANNABIDIOL
     Indication: LENNOX-GASTAUT SYNDROME
     Dosage: ?          OTHER FREQUENCY:TWICE A DAY;?
     Route: 048
     Dates: start: 20190118
  5. CALCIUM [Concomitant]
     Active Substance: CALCIUM
  6. SCOPOLAMINE [Concomitant]
     Active Substance: SCOPOLAMINE
  7. PRAVACID [Concomitant]
  8. MULTIVITAMIN [Concomitant]
     Active Substance: VITAMINS
  9. ZONISAMIDE. [Concomitant]
     Active Substance: ZONISAMIDE
  10. PROBIOTIC [Concomitant]
     Active Substance: PROBIOTICS NOS

REACTIONS (1)
  - Seizure [None]

NARRATIVE: CASE EVENT DATE: 20190215
